FAERS Safety Report 7078990-0 (Version None)
Quarter: 2010Q4

REPORT INFORMATION
  Report Type: 
  Country: None (occurrence: None)
  Receive Date: 20101102
  Receipt Date: 20101022
  Transmission Date: 20110411
  Serious: Yes (Life-Threatening, Other)
  Sender: FDA-Public Use
  Company Number: JP-ROCHE-719555

PATIENT
  Age: 70 Year
  Sex: Female
  Weight: 38 kg

DRUGS (20)
  1. AVASTIN [Suspect]
     Indication: LUNG ADENOCARCINOMA
     Route: 041
     Dates: start: 20100625, end: 20100721
  2. AVASTIN [Suspect]
     Route: 041
     Dates: end: 20100801
  3. ACTEMRA [Suspect]
     Indication: RHEUMATOID ARTHRITIS
     Route: 041
     Dates: start: 20080407
  4. ANTI-INFLAMMATORY [Suspect]
     Dosage: DOSAGE IS UNCERTAIN
     Route: 065
  5. LORCAM [Suspect]
     Indication: RHEUMATOID ARTHRITIS
     Route: 048
     Dates: end: 20100621
  6. VOLTAREN [Suspect]
     Indication: RHEUMATOID ARTHRITIS
     Route: 054
     Dates: end: 20100622
  7. PREDNISOLONE [Suspect]
     Indication: RHEUMATOID ARTHRITIS
     Dosage: PREDOHAN(PREDNISOLONE)
     Route: 048
     Dates: end: 20100625
  8. PREDNISOLONE [Suspect]
     Indication: RHEUMATOID ARTHRITIS
     Route: 048
     Dates: start: 20100625
  9. ALIMTA [Concomitant]
     Route: 041
     Dates: start: 20100625, end: 20100721
  10. CARBOPLATIN [Concomitant]
     Dosage: DIOSAGE IS UNCERTAIN
     Route: 041
  11. LEVOFLOXACIN [Concomitant]
     Route: 048
  12. FERROUS CITRATE [Concomitant]
     Route: 048
  13. EVISTA [Concomitant]
  14. ISCOTIN [Concomitant]
     Route: 048
  15. PYDOXAL [Concomitant]
     Route: 048
  16. KLARICID [Concomitant]
     Route: 048
  17. TAKEPRON [Concomitant]
     Route: 048
     Dates: end: 20100630
  18. PLETAL [Concomitant]
     Route: 048
  19. PURSENNID [Concomitant]
     Route: 048
  20. TAKEPRON [Concomitant]
     Route: 048
     Dates: start: 20100806

REACTIONS (15)
  - ATRIAL FIBRILLATION [None]
  - BLOOD UREA INCREASED [None]
  - C-REACTIVE PROTEIN INCREASED [None]
  - CARDIAC FAILURE [None]
  - DIARRHOEA [None]
  - GASTRITIS [None]
  - GASTROINTESTINAL AMYLOIDOSIS [None]
  - GASTROINTESTINAL PERFORATION [None]
  - ILEAL PERFORATION [None]
  - PERITONITIS [None]
  - PLEURAL EFFUSION [None]
  - PYREXIA [None]
  - SMALL INTESTINE ULCER [None]
  - STAPHYLOCOCCAL INFECTION [None]
  - TACHYCARDIA [None]
